FAERS Safety Report 17660970 (Version 2)
Quarter: 2020Q2

REPORT INFORMATION
  Report Type: Spontaneous
  Country: US (occurrence: US)
  Receive Date: 20200413
  Receipt Date: 20200422
  Transmission Date: 20200713
  Serious: No
  Sender: FDA-Public Use
  Company Number: US-SA-2020SA094745

PATIENT
  Age: 46 Year
  Sex: Female

DRUGS (1)
  1. CABLIVI [Suspect]
     Active Substance: CAPLACIZUMAB-YHDP
     Indication: THROMBOTIC MICROANGIOPATHY
     Dosage: 11 MG, QD
     Route: 058
     Dates: start: 20200402

REACTIONS (10)
  - Paraesthesia oral [Unknown]
  - Anxiety [Unknown]
  - Wrong technique in product usage process [Unknown]
  - Palpitations [Unknown]
  - Oral mucosal blistering [Unknown]
  - Injection site pain [Unknown]
  - Platelet count decreased [Unknown]
  - Injection site bruising [Unknown]
  - Chest pain [Unknown]
  - Feeling abnormal [Unknown]

NARRATIVE: CASE EVENT DATE: 202004
